FAERS Safety Report 16743021 (Version 1)
Quarter: 2019Q3

REPORT INFORMATION
  Report Type: Spontaneous
  Country: GB (occurrence: GB)
  Receive Date: 20190827
  Receipt Date: 20190827
  Transmission Date: 20191005
  Serious: Yes (Other)
  Sender: FDA-Public Use
  Company Number: GB-AUROBINDO-AUR-APL-2019-056178

PATIENT

DRUGS (1)
  1. MIRTAZAPINE. [Suspect]
     Active Substance: MIRTAZAPINE
     Indication: DEPRESSION
     Dosage: UNK, 1/2
     Route: 048
     Dates: start: 20190702, end: 20190721

REACTIONS (12)
  - Thinking abnormal [Unknown]
  - Emotional disorder [Unknown]
  - Condition aggravated [Not Recovered/Not Resolved]
  - Intentional self-injury [Not Recovered/Not Resolved]
  - Binge eating [Not Recovered/Not Resolved]
  - Anxiety [Unknown]
  - Suicidal behaviour [Not Recovered/Not Resolved]
  - Personality change [Not Recovered/Not Resolved]
  - Aggression [Not Recovered/Not Resolved]
  - Conversion disorder [Not Recovered/Not Resolved]
  - Insomnia [Not Recovered/Not Resolved]
  - Pruritus [Unknown]

NARRATIVE: CASE EVENT DATE: 20190702
